FAERS Safety Report 9681294 (Version 1)
Quarter: 2013Q4

REPORT INFORMATION
  Report Type: Spontaneous
  Country: GB (occurrence: GB)
  Receive Date: 20131111
  Receipt Date: 20131111
  Transmission Date: 20140711
  Serious: Yes (Other)
  Sender: FDA-Public Use
  Company Number: GB-TEVA-442357ISR

PATIENT
  Age: 88 Year
  Sex: Female

DRUGS (2)
  1. AMITRIPTYLINE [Suspect]
     Indication: INTERVERTEBRAL DISC DISORDER
     Dosage: 20 MG, 1X/DAY
  2. LYRICA [Suspect]
     Dosage: 75 MG, 1X/DAY

REACTIONS (2)
  - Cardiac failure [Unknown]
  - Local swelling [Unknown]
